FAERS Safety Report 22211276 (Version 1)
Quarter: 2023Q2

REPORT INFORMATION
  Report Type: Report from Study
  Country: IT (occurrence: IT)
  Receive Date: 20230414
  Receipt Date: 20230414
  Transmission Date: 20230721
  Serious: Yes (Other)
  Sender: FDA-Public Use
  Company Number: IT-HALEON-ITCH2023HLN015722

PATIENT

DRUGS (1)
  1. IBUPROFEN [Suspect]
     Active Substance: IBUPROFEN
     Indication: Product used for unknown indication
     Dosage: UNK

REACTIONS (4)
  - Anaphylactic reaction [Unknown]
  - Angioedema [Unknown]
  - Urticaria [Unknown]
  - Respiratory disorder [Unknown]
